FAERS Safety Report 6901932-2 (Version None)
Quarter: 2010Q3

REPORT INFORMATION
  Report Type: 
  Country: None (occurrence: None)
  Receive Date: 20100803
  Receipt Date: 20080401
  Transmission Date: 20110219
  Serious: No
  Sender: FDA-Public Use
  Company Number: US-PFIZER INC-2008014221

PATIENT
  Age: 44 Year
  Sex: Female
  Weight: 78.9 kg

DRUGS (5)
  1. LYRICA [Suspect]
     Indication: FIBROMYALGIA
     Route: 048
     Dates: start: 20071030, end: 20080131
  2. CELEXA [Concomitant]
  3. LEVOXYL [Concomitant]
  4. FOLIC ACID [Concomitant]
  5. YASMIN [Concomitant]

REACTIONS (5)
  - ABDOMINAL DISCOMFORT [None]
  - DIZZINESS [None]
  - DRUG INEFFECTIVE [None]
  - OEDEMA PERIPHERAL [None]
  - WEIGHT INCREASED [None]
